FAERS Safety Report 19008892 (Version 1)
Quarter: 2021Q1

REPORT INFORMATION
  Report Type: Report from Study
  Country: US (occurrence: US)
  Receive Date: 20210315
  Receipt Date: 20210315
  Transmission Date: 20210420
  Serious: Yes (Hospitalization)
  Sender: FDA-Public Use
  Company Number: US-GILEAD-2021-0521121

PATIENT
  Age: 76 Year
  Sex: Female

DRUGS (21)
  1. AZATHIOPRINE. [Concomitant]
     Active Substance: AZATHIOPRINE
  2. BUMETANIDE. [Concomitant]
     Active Substance: BUMETANIDE
  3. ASPIRIN (E.C.) [Concomitant]
     Active Substance: ASPIRIN
  4. BISOPROL [Concomitant]
     Active Substance: BISOPROLOL FUMARATE
  5. POTASSIUM [Concomitant]
     Active Substance: POTASSIUM
  6. VIT B 12 [Concomitant]
     Active Substance: CYANOCOBALAMIN
  7. FUROSEMIDE. [Concomitant]
     Active Substance: FUROSEMIDE
  8. PLAVIX [Concomitant]
     Active Substance: CLOPIDOGREL BISULFATE
  9. VIT D [Concomitant]
     Active Substance: VITAMIN D NOS
  10. OXYCODONE [Concomitant]
     Active Substance: OXYCODONE
  11. STIOLTO RESPIMAT [Concomitant]
     Active Substance: OLODATEROL HYDROCHLORIDE\TIOTROPIUM BROMIDE MONOHYDRATE
  12. AMBRISENTAN [Suspect]
     Active Substance: AMBRISENTAN
     Indication: PULMONARY ARTERIAL HYPERTENSION
     Dosage: 10 MG
     Route: 065
     Dates: start: 20140424
  13. LASIX [Concomitant]
     Active Substance: FUROSEMIDE
  14. AMLODIPINE [Concomitant]
     Active Substance: AMLODIPINE BESYLATE
  15. CHLORTHALIDON [Concomitant]
     Active Substance: CHLORTHALIDONE
  16. LEVOCETIRIZIN [Concomitant]
     Active Substance: LEVOCETIRIZINE DIHYDROCHLORIDE
  17. POTASSIUM CHLORIDE. [Concomitant]
     Active Substance: POTASSIUM CHLORIDE
  18. PRAVASTATIN. [Concomitant]
     Active Substance: PRAVASTATIN
  19. ADEMPAS [Concomitant]
     Active Substance: RIOCIGUAT
  20. ALBUTEROL [SALBUTAMOL SULFATE] [Concomitant]
     Active Substance: ALBUTEROL SULFATE
  21. GABAPENTIN. [Concomitant]
     Active Substance: GABAPENTIN

REACTIONS (2)
  - Product use issue [Recovered/Resolved]
  - COVID-19 [Recovered/Resolved]

NARRATIVE: CASE EVENT DATE: 202011
